FAERS Safety Report 5471794-1 (Version None)
Quarter: 2007Q3

REPORT INFORMATION
  Report Type: 
  Country: None (occurrence: None)
  Receive Date: 20070928
  Receipt Date: 20070525
  Transmission Date: 20080115
  Serious: No
  Sender: FDA-Public Use
  Company Number: US-BRISTOL-MYERS SQUIBB COMPANY-13794334

PATIENT
  Age: 86 Year
  Sex: Male
  Weight: 81 kg

DRUGS (11)
  1. DEFINITY [Suspect]
     Indication: STRESS ECHOCARDIOGRAM
     Route: 040
     Dates: start: 20070525, end: 20070525
  2. DEFINITY [Suspect]
     Route: 040
  3. ALEVE [Concomitant]
  4. MULTI-VITAMIN [Concomitant]
  5. NITROGLYCERIN [Concomitant]
     Route: 060
  6. TIMOPTIC DROPS [Concomitant]
     Route: 031
  7. METOPROLOL SUCCINATE [Concomitant]
  8. HYDROCHLOROTHIAZIDE [Concomitant]
  9. SIMVASTATIN [Concomitant]
  10. GLUCOSAMINE [Concomitant]
  11. ASPIRIN [Concomitant]

REACTIONS (2)
  - ARTHRALGIA [None]
  - BACK PAIN [None]
